FAERS Safety Report 8341391 (Version 7)
Quarter: 2012Q4

REPORT INFORMATION
  Report Type: 
  Country: US (occurrence: US)
  Receive Date: 20111202
  Receipt Date: 20120828
  Transmission Date: 20130627
  Serious: Yes (Hospitalization, Disabling, Other)
  Sender: FDA-Public Use
  Company Number: US-009507513-2011SP046645

PATIENT

DRUGS (3)
  1. NUVARING [Suspect]
     Indication: CONTRACEPTION
     Dates: start: 2003, end: 200808
  2. NUVARING [Suspect]
     Dates: end: 200810
  3. MINERALS (UNSPECIFIED) (+) VITAMINS (UNSPECIFIED) [Concomitant]
     Indication: VITAMIN SUPPLEMENTATION
     Dosage: 1 DF, QD
     Dates: start: 200808

REACTIONS (20)
  - Hydrocephalus [Unknown]
  - Haemorrhage intracranial [Unknown]
  - Cerebrovascular accident [Unknown]
  - Migraine [Unknown]
  - Cervical dysplasia [Unknown]
  - Papilloma viral infection [Unknown]
  - Nasopharyngitis [Recovered/Resolved]
  - Bronchospasm [Recovered/Resolved]
  - Palpitations [Unknown]
  - Neck pain [Recovering/Resolving]
  - Musculoskeletal pain [Recovering/Resolving]
  - Cervicitis [Unknown]
  - Headache [Unknown]
  - Gastritis [Unknown]
  - Hypersensitivity [Recovered/Resolved]
  - Gastric disorder [Unknown]
  - Urticaria [Recovered/Resolved]
  - Constipation [Unknown]
  - Ligament sprain [Unknown]
  - Excoriation [Unknown]
